FAERS Safety Report 7800110-2 (Version None)
Quarter: 2011Q4

REPORT INFORMATION
  Report Type: 
  Country: None (occurrence: None)
  Receive Date: 20111006
  Receipt Date: 20110927
  Transmission Date: 20120403
  Serious: Yes (Other)
  Sender: FDA-Public Use
  Company Number: US-ASTRAZENECA-2011SE57912

PATIENT
  Sex: Female

DRUGS (3)
  1. UNSPECIFIED HORMON REPLACEMENT THERAPY [Suspect]
  2. CRESTOR [Suspect]
     Indication: HYPERCHOLESTEROLAEMIA
     Route: 048
  3. PREMARIN [Suspect]

REACTIONS (1)
  - BREAST CANCER FEMALE [None]
